FAERS Safety Report 7324012-3 (Version None)
Quarter: 2011Q1

REPORT INFORMATION
  Report Type: 
  Country: None (occurrence: None)
  Receive Date: 20110301
  Receipt Date: 20110222
  Transmission Date: 20110831
  Serious: Yes (Other)
  Sender: FDA-Public Use
  Company Number: JP-ASTRAZENECA-2011SE10387

PATIENT
  Sex: Male

DRUGS (1)
  1. XYLOCAINE [Suspect]
     Indication: EPIDURAL ANAESTHESIA
     Dosage: DOSE UNKNOWN
     Route: 008

REACTIONS (2)
  - SHOCK [None]
  - CONVULSION [None]
